FAERS Safety Report 5239840-8 (Version None)
Quarter: 2007Q1

REPORT INFORMATION
  Report Type: 
  Country: None (occurrence: None)
  Receive Date: 20070214
  Receipt Date: 20070214
  Transmission Date: 20070707
  Serious: No
  Sender: FDA-Public Use
  Company Number: None

PATIENT
  Age: 77 Year
  Sex: Female
  Weight: 48.0813 kg

DRUGS (1)
  1. LIPITOR [Suspect]
     Indication: BLOOD CHOLESTEROL INCREASED
     Dosage: VERY LOW
     Dates: start: 20060107, end: 20060401

REACTIONS (8)
  - AMYOTROPHIC LATERAL SCLEROSIS [None]
  - BLOOD ALKALINE PHOSPHATASE [None]
  - DYSARTHRIA [None]
  - DYSPHAGIA [None]
  - EATING DISORDER [None]
  - LIMB DISCOMFORT [None]
  - TOTAL LUNG CAPACITY DECREASED [None]
  - WEIGHT DECREASED [None]
